FAERS Safety Report 19352247 (Version 1)
Quarter: 2021Q2

REPORT INFORMATION
  Report Type: Spontaneous
  Country: US (occurrence: US)
  Receive Date: 20210601
  Receipt Date: 20210601
  Transmission Date: 20210717
  Serious: No
  Sender: FDA-Public Use
  Company Number: US-GLAUKOS-AVE-2021-0012-AE

PATIENT
  Sex: Male

DRUGS (13)
  1. PHOTREXA [Suspect]
     Active Substance: RIBOFLAVIN 5^-PHOSPHATE SODIUM
     Dosage: 2?3 DROPS EVERY TWO MINUTES FOR 30 MINUTES DURING ULTRAVIOLET LIGHT
     Route: 047
     Dates: start: 20201106, end: 20201106
  2. UNSPECIFIED NUMBING DROPS [Concomitant]
     Indication: DISCOMFORT
     Dosage: PRE?OPERATIVE DROPS
     Route: 047
     Dates: start: 20201106, end: 20201106
  3. BANDAGE CONTACT LENS [Concomitant]
     Active Substance: DEVICE
     Indication: PRODUCT USED FOR UNKNOWN INDICATION
     Route: 047
     Dates: start: 20201106
  4. PILOCARPINE. [Concomitant]
     Active Substance: PILOCARPINE
     Indication: PRODUCT USED FOR UNKNOWN INDICATION
     Dosage: 1?2 DROPS
     Route: 047
     Dates: start: 20201106, end: 20201106
  5. KXL SYSTEM [Suspect]
     Active Substance: DEVICE
     Indication: KERATOCONUS
     Route: 047
     Dates: start: 20201106, end: 20201106
  6. UNSPECIFIED NUMBING DROPS [Concomitant]
     Dosage: EVERY FIVE MINUTES FOR 30 MINUTES DURING INDUCTION
     Route: 047
     Dates: start: 20201106, end: 20201106
  7. DEHYDRATED ALCOHOL SOLUTION MIX [Concomitant]
     Indication: DEBRIDEMENT
     Route: 047
     Dates: start: 20201106, end: 20201106
  8. UNSPECIFIED NUMBING DROPS [Concomitant]
     Dosage: EVERY FIVE MINUTES FOR 30 MINUTES DURING ULTRAVIOLET LIGHT PORTION
     Route: 047
     Dates: start: 20201106, end: 20201106
  9. BSS [Concomitant]
     Active Substance: CALCIUM CHLORIDE\MAGNESIUM CHLORIDE\POTASSIUM CHLORIDE\SODIUM ACETATE\SODIUM CHLORIDE\SODIUM CITRATE
     Indication: EYE IRRIGATION
     Route: 047
     Dates: start: 20201106, end: 20201106
  10. OFLOXACIN. [Concomitant]
     Active Substance: OFLOXACIN
     Indication: PRODUCT USED FOR UNKNOWN INDICATION
     Dosage: 3 DROPS, END OF PROCEDURE
     Route: 047
     Dates: start: 20201106, end: 20201106
  11. PHOTREXA [Suspect]
     Active Substance: RIBOFLAVIN 5^-PHOSPHATE SODIUM
     Indication: KERATOCONUS
     Dosage: 2?3 DROPS AT DEBRIDEMENT
     Route: 047
     Dates: start: 20201106, end: 20201106
  12. PHOTREXA [Suspect]
     Active Substance: RIBOFLAVIN 5^-PHOSPHATE SODIUM
     Dosage: 2?3 DROPS EVERY MINUTE FOR 30 MINUTES AT INDUCTION
     Route: 047
     Dates: start: 20201106, end: 20201106
  13. PREDNISOLONE. [Concomitant]
     Active Substance: PREDNISOLONE
     Indication: PRODUCT USED FOR UNKNOWN INDICATION
     Dosage: 1 DROP, END OF PROCEDURE
     Route: 047
     Dates: start: 20201106, end: 20201106

REACTIONS (2)
  - Eye infection [Unknown]
  - Inappropriate schedule of product administration [Unknown]

NARRATIVE: CASE EVENT DATE: 20201106
